FAERS Safety Report 7419212-8 (Version None)
Quarter: 2011Q2

REPORT INFORMATION
  Report Type: 
  Country: None (occurrence: None)
  Receive Date: 20110415
  Receipt Date: 20110405
  Transmission Date: 20111010
  Serious: Yes (Hospitalization)
  Sender: FDA-Public Use
  Company Number: JP-AMGEN-JPNCT2011013559

PATIENT
  Age: 40 Year
  Sex: Male
  Weight: 86 kg

DRUGS (20)
  1. KINDAVATE [Concomitant]
     Dosage: UNK
     Route: 062
  2. FLUOROURACIL [Suspect]
     Route: 041
     Dates: start: 20100825
  3. CORTICOSTEROIDS [Concomitant]
     Indication: PROPHYLAXIS
     Dosage: UNK
     Route: 065
  4. DECADRON [Concomitant]
     Route: 048
  5. WARFARIN [Concomitant]
     Dosage: UNK
     Route: 048
  6. PANITUMUMAB [Suspect]
     Indication: COLORECTAL CANCER
     Dosage: 6 MG/KG, Q2WK
     Route: 041
     Dates: start: 20101117
  7. ANTIHISTAMINES [Concomitant]
     Indication: PROPHYLAXIS
     Route: 065
  8. MINOCYCLINE HCL [Concomitant]
     Dosage: UNK
     Route: 048
  9. ZYROLIC [Concomitant]
     Dosage: UNK
     Route: 048
  10. TAKEPRON [Concomitant]
     Dosage: UNK
     Route: 048
  11. MYSER [Concomitant]
     Route: 062
  12. GRANISETRON HCL [Concomitant]
     Dosage: UNK
  13. FLUOROURACIL [Suspect]
     Indication: COLORECTAL CANCER
     Dosage: 400 MG/M2, Q2WK
     Route: 040
     Dates: start: 20100825
  14. AZUNOL ST [Concomitant]
     Dosage: UNK
     Route: 049
  15. LAC B [Concomitant]
     Dosage: UNK
     Route: 048
  16. IRINOTECAN HCL [Suspect]
     Indication: COLORECTAL CANCER
     Dosage: 150 MG/M2, Q2WK
     Route: 041
     Dates: start: 20100825
  17. CALCIUM LEVOFOLINATE [Suspect]
     Indication: COLORECTAL CANCER
     Dosage: 200 MG/M2, Q2WK
     Route: 041
     Dates: start: 20100825
  18. HIRUDOID [Concomitant]
     Route: 062
  19. EXCEGRAN [Concomitant]
     Dosage: UNK
     Route: 048
  20. BETAMETHASONE [Concomitant]
     Route: 048

REACTIONS (6)
  - MALAISE [None]
  - DECREASED APPETITE [None]
  - ALOPECIA [None]
  - COUGH [None]
  - DERMATITIS ACNEIFORM [None]
  - NEUROPATHY PERIPHERAL [None]
